FAERS Safety Report 13873104 (Version 1)
Quarter: 2017Q3

REPORT INFORMATION
  Report Type: Spontaneous
  Country: US (occurrence: US)
  Receive Date: 20170816
  Receipt Date: 20170816
  Transmission Date: 20171127
  Serious: Yes (Death, Hospitalization, Other)
  Sender: FDA-Public Use
  Company Number: US-TEVA-797946USA

PATIENT
  Age: 26 Year
  Sex: Female

DRUGS (3)
  1. HYDROXYCHLOROQUINE [Suspect]
     Active Substance: HYDROXYCHLOROQUINE
     Indication: SYSTEMIC LUPUS ERYTHEMATOSUS
     Route: 065
     Dates: start: 201102, end: 201105
  2. MORPHINE SULFATE. [Concomitant]
     Active Substance: MORPHINE SULFATE
     Dosage: CRUSHED THROUGH FEEDING TUBE
     Route: 065
  3. PLAQUENIL [Suspect]
     Active Substance: HYDROXYCHLOROQUINE SULFATE
     Indication: SYSTEMIC LUPUS ERYTHEMATOSUS
     Route: 065
     Dates: start: 2011

REACTIONS (14)
  - Death [Fatal]
  - Haematocrit decreased [Unknown]
  - Clostridial sepsis [Unknown]
  - Blood pressure decreased [Unknown]
  - Malaise [Unknown]
  - Gastrointestinal injury [Unknown]
  - Haemoglobin decreased [Unknown]
  - Weight decreased [Unknown]
  - Failure to thrive [Unknown]
  - Product physical issue [Unknown]
  - Localised oedema [Unknown]
  - Respiratory distress [Unknown]
  - General physical health deterioration [Unknown]
  - Product expiration date issue [Unknown]
